FAERS Safety Report 11488460 (Version 1)
Quarter: 2015Q3

REPORT INFORMATION
  Report Type: Spontaneous
  Country: US (occurrence: US)
  Receive Date: 20150910
  Receipt Date: 20150910
  Transmission Date: 20151125
  Serious: Yes (Other)
  Sender: FDA-Public Use
  Company Number: US-ROCHE-1543727

PATIENT
  Sex: Male
  Weight: 114 kg

DRUGS (5)
  1. ZOFRAN [Concomitant]
     Active Substance: ONDANSETRON HYDROCHLORIDE
  2. EPOGEN [Concomitant]
     Active Substance: ERYTHROPOIETIN
     Dosage: DOSE: 1000-1500
     Route: 065
     Dates: start: 20140418, end: 20150220
  3. MIRCERA [Suspect]
     Active Substance: METHOXY POLYETHYLENE GLYCOL-EPOETIN BETA
     Indication: PRODUCT USED FOR UNKNOWN INDICATION
     Dosage: IVP
     Route: 065
     Dates: start: 20150220, end: 20150220
  4. HEPARIN (BOLUS) [Concomitant]
  5. BENADRYL [Concomitant]
     Active Substance: DIPHENHYDRAMINE HYDROCHLORIDE

REACTIONS (3)
  - Drug hypersensitivity [Recovered/Resolved]
  - Drug ineffective [Unknown]
  - Dizziness [Recovered/Resolved]
